FAERS Safety Report 10234294 (Version 2)
Quarter: 2014Q3

REPORT INFORMATION
  Report Type: Spontaneous
  Country: GB (occurrence: GB)
  Receive Date: 20140612
  Receipt Date: 20140721
  Transmission Date: 20150326
  Serious: Yes (Other)
  Sender: FDA-Public Use
  Company Number: GB-ELI_LILLY_AND_COMPANY-GB201406000255

PATIENT
  Age: 70 Year
  Sex: Female
  Weight: 50 kg

DRUGS (4)
  1. CALCET                             /00637401/ [Concomitant]
     Indication: PRODUCT USED FOR UNKNOWN INDICATION
     Route: 065
  2. LORATADINE. [Concomitant]
     Active Substance: LORATADINE
     Indication: PRODUCT USED FOR UNKNOWN INDICATION
     Dosage: 5 MG, UNKNOWN
     Route: 065
  3. PARACETAMOL [Concomitant]
     Active Substance: ACETAMINOPHEN
     Indication: PRODUCT USED FOR UNKNOWN INDICATION
     Dosage: UNK
     Route: 065
  4. FORSTEO [Suspect]
     Active Substance: TERIPARATIDE
     Indication: OSTEOPOROSIS
     Dosage: 20 UG, QD
     Route: 058
     Dates: start: 201306, end: 201312

REACTIONS (9)
  - Night sweats [Recovered/Resolved]
  - Muscle spasms [Recovering/Resolving]
  - Food intolerance [Not Recovered/Not Resolved]
  - Arthralgia [Unknown]
  - Back pain [Recovering/Resolving]
  - Fatigue [Recovering/Resolving]
  - Rhinitis [Recovering/Resolving]
  - Migraine [Recovering/Resolving]
  - Influenza like illness [Recovering/Resolving]
